FAERS Safety Report 17442505 (Version 1)
Quarter: 2020Q1

REPORT INFORMATION
  Report Type: Spontaneous
  Country: IN (occurrence: IN)
  Receive Date: 20200220
  Receipt Date: 20200220
  Transmission Date: 20200409
  Serious: Yes (Hospitalization, Other)
  Sender: FDA-Public Use
  Company Number: IN-SA-2020SA028765

PATIENT
  Age: 62 Year
  Sex: Female

DRUGS (2)
  1. TRIAMCINOLONE ACETONIDE. [Suspect]
     Active Substance: TRIAMCINOLONE ACETONIDE
     Indication: INFLAMMATION
     Dosage: 0.5 CC OF TRIAMCINOLONE ACETONIDE SUSPENSION, 40 MG/ML
  2. SILICONE OIL [Concomitant]
     Active Substance: DIMETHICONE

REACTIONS (11)
  - Aspergillus infection [Recovered/Resolved]
  - Corneal opacity [Unknown]
  - Necrosis [Recovering/Resolving]
  - Staphyloma [Recovering/Resolving]
  - Corneal thinning [Recovering/Resolving]
  - Keratitis fungal [Recovered/Resolved]
  - Scleral disorder [Recovered/Resolved]
  - Cataract [Unknown]
  - Corneal disorder [Recovering/Resolving]
  - Persistent corneal epithelial defect [Recovering/Resolving]
  - Scleral deposits [Recovered/Resolved]
